FAERS Safety Report 13189384 (Version 1)
Quarter: 2017Q1

REPORT INFORMATION
  Report Type: Spontaneous
  Country: US (occurrence: US)
  Receive Date: 20170204
  Receipt Date: 20170204
  Transmission Date: 20170428
  Serious: Yes (Hospitalization)
  Sender: FDA-Public Use
  Company Number: None

PATIENT
  Age: 38 Year
  Sex: Male
  Weight: 87.5 kg

DRUGS (1)
  1. CISPLATIN. [Suspect]
     Active Substance: CISPLATIN
     Dates: end: 20170109

REACTIONS (11)
  - Confusional state [None]
  - Candida infection [None]
  - Hypophagia [None]
  - Drug level increased [None]
  - Pharyngeal inflammation [None]
  - Lethargy [None]
  - Dehydration [None]
  - Urine ketone body absent [None]
  - Glucose urine [None]
  - Acute kidney injury [None]
  - Prerenal failure [None]

NARRATIVE: CASE EVENT DATE: 20170129
